FAERS Safety Report 9848705 (Version 2)
Quarter: 2014Q1

REPORT INFORMATION
  Report Type: Report from Study
  Country: DE (occurrence: DE)
  Receive Date: 20140128
  Receipt Date: 20140131
  Transmission Date: 20141002
  Serious: Yes (Hospitalization)
  Sender: FDA-Public Use
  Company Number: DE-ROCHE-1339907

PATIENT
  Age: 46 Year
  Sex: Female
  Weight: 57.5 kg

DRUGS (5)
  1. BEVACIZUMAB [Suspect]
     Indication: COLON CANCER
     Dosage: MOST RECENT DOSE PRIOR TO ONSET OF FEVER WAS 5 MG/KG ON 02/JAN/2014.
     Route: 065
     Dates: start: 20131108
  2. OXALIPLATIN [Suspect]
     Indication: COLON CANCER
     Dosage: MOST RECENT DOSE PRIOR TO ONSET OF FEVER WAS 85 MG/M2 ON 02/JAN/2014.
     Route: 065
     Dates: start: 20131108
  3. LEUCOVORIN [Suspect]
     Indication: COLON CANCER
     Dosage: MOST RECENT DOSE PRIOR TO ONSET OF FEVER WAS 200 MG/M2 ON 02/JAN/2014.
     Route: 065
     Dates: start: 20131108
  4. FLUOROURACIL [Suspect]
     Indication: COLON CANCER
     Dosage: MOST RECENT DOSE PRIOR TO ONSET OF FEVER WAS 3200 MG/M2 ON 02/JAN/2014.
     Route: 065
  5. IRINOTECAN [Suspect]
     Indication: COLON CANCER
     Dosage: MOST RECENT DOSE PRIOR TO ONSET OF FEVER WAS 165 MG/M2 ON 02/JAN/2014.
     Route: 065

REACTIONS (1)
  - Infection [Not Recovered/Not Resolved]
